FAERS Safety Report 19990134 (Version 3)
Quarter: 2022Q3

REPORT INFORMATION
  Report Type: Report from Study
  Country: DE (occurrence: DE)
  Receive Date: 20211025
  Receipt Date: 20220807
  Transmission Date: 20221027
  Serious: Yes (Hospitalization, Other)
  Sender: FDA-Public Use
  Company Number: DE-ABBVIE-21K-062-4130379-00

PATIENT
  Age: 57 Year
  Sex: Female

DRUGS (6)
  1. RINVOQ [Suspect]
     Active Substance: UPADACITINIB
     Indication: Rheumatoid arthritis
     Route: 048
     Dates: start: 202002, end: 20210930
  2. CANDESARTAN [Concomitant]
     Active Substance: CANDESARTAN
     Indication: Product used for unknown indication
  3. PREDNISOLONE [Concomitant]
     Active Substance: PREDNISOLONE
     Indication: Product used for unknown indication
  4. METHOTREXATE [Concomitant]
     Active Substance: METHOTREXATE
     Indication: Product used for unknown indication
  5. METHOTREXATE [Concomitant]
     Active Substance: METHOTREXATE
  6. METHOTREXATE [Concomitant]
     Active Substance: METHOTREXATE

REACTIONS (6)
  - Vulval cancer [Not Recovered/Not Resolved]
  - Metastases to lymph nodes [Not Recovered/Not Resolved]
  - Vulval leukoplakia [Unknown]
  - Vulvar dysplasia [Unknown]
  - Suture rupture [Recovered/Resolved]
  - Postoperative wound infection [Recovered/Resolved]

NARRATIVE: CASE EVENT DATE: 20210301
